FAERS Safety Report 5093330-4 (Version None)
Quarter: 2006Q3

REPORT INFORMATION
  Report Type: 
  Country: None (occurrence: None)
  Receive Date: 20060828
  Receipt Date: 20060815
  Transmission Date: 20061208
  Serious: Yes (Other)
  Sender: FDA-Public Use
  Company Number: 2006097151

PATIENT
  Age: 47 Year
  Sex: Male

DRUGS (1)
  1. VIBRAMICINA (DOXYCYCLINE) [Suspect]
     Indication: HELMINTHIC INFECTION
     Dosage: 200 MG (100 MG, 2 IN 1 D), ORAL
     Route: 048
     Dates: start: 20060805, end: 20060807

REACTIONS (2)
  - BLISTER [None]
  - OEDEMA [None]
